FAERS Safety Report 24711396 (Version 1)
Quarter: 2024Q4

REPORT INFORMATION
  Report Type: Spontaneous
  Country: JP (occurrence: JP)
  Receive Date: 20241209
  Receipt Date: 20241209
  Transmission Date: 20250115
  Serious: Yes (Other)
  Sender: ABBVIE
  Company Number: JP-ABBVIE-6031948

PATIENT
  Sex: Male
  Weight: 85 kg

DRUGS (1)
  1. ASENAPINE MALEATE [Suspect]
     Active Substance: ASENAPINE MALEATE
     Indication: Product used for unknown indication
     Route: 060
     Dates: start: 20240601

REACTIONS (25)
  - Loss of consciousness [Unknown]
  - Chromaturia [Unknown]
  - Somnolence [Unknown]
  - Hypoaesthesia oral [Unknown]
  - Lip swelling [Unknown]
  - Pharyngeal swelling [Unknown]
  - Akathisia [Unknown]
  - Tremor [Unknown]
  - Respiration abnormal [Unknown]
  - Weight increased [Unknown]
  - Wound haemorrhage [Unknown]
  - Fall [Unknown]
  - Urticaria [Unknown]
  - Eye swelling [Unknown]
  - Suffocation feeling [Unknown]
  - Chest discomfort [Unknown]
  - Thirst [Unknown]
  - Pollakiuria [Unknown]
  - Asthenia [Unknown]
  - Chills [Unknown]
  - Nausea [Unknown]
  - Abdominal discomfort [Unknown]
  - Vomiting [Unknown]
  - Decreased appetite [Unknown]
  - Hypophagia [Unknown]
